FAERS Safety Report 18369781 (Version 1)
Quarter: 2020Q4

REPORT INFORMATION
  Report Type: Spontaneous
  Country: DE (occurrence: DE)
  Receive Date: 20201012
  Receipt Date: 20201012
  Transmission Date: 20210114
  Serious: Yes (Other)
  Sender: FDA-Public Use
  Company Number: DE-PFIZER INC-2020387287

PATIENT
  Age: 34 Year
  Sex: Male
  Weight: 92 kg

DRUGS (2)
  1. PANTOPRAZOLE [Suspect]
     Active Substance: PANTOPRAZOLE
     Indication: ABDOMINAL PAIN UPPER
     Dosage: 20 MG
     Route: 048
     Dates: start: 202004, end: 202007
  2. HULIO [Suspect]
     Active Substance: ADALIMUMAB-FKJP
     Indication: PSORIASIS
     Dosage: 40 MG
     Route: 048
     Dates: start: 20181129, end: 20200802

REACTIONS (2)
  - Colon cancer [Unknown]
  - Abdominal pain upper [Unknown]

NARRATIVE: CASE EVENT DATE: 202004
